FAERS Safety Report 8844688 (Version 1)
Quarter: 2012Q4

REPORT INFORMATION
  Report Type: Spontaneous
  Country: US (occurrence: None)
  Receive Date: 20121016
  Receipt Date: 20121016
  Transmission Date: 20130627
  Serious: Yes (Hospitalization)
  Sender: FDA-Public Use
  Company Number: None

PATIENT
  Age: 66 Year
  Sex: Female

DRUGS (16)
  1. COUMADIN [Suspect]
     Indication: DVT
     Dosage: chronic
     Route: 048
  2. ASA [Suspect]
     Route: 048
  3. TYLENOL [Concomitant]
  4. DIAZEPAM [Concomitant]
  5. VIT D [Concomitant]
  6. OMEPRAZOLE [Concomitant]
  7. OXYBUTIN [Concomitant]
  8. PRAVASTATIN [Concomitant]
  9. LOPERAMIDE [Concomitant]
  10. NORCO [Concomitant]
  11. VIT C [Concomitant]
  12. DULCOLAX [Concomitant]
  13. COREG [Concomitant]
  14. HYDRALAZINE [Concomitant]
  15. ZINC SULFATE [Concomitant]
  16. LASIX [Suspect]

REACTIONS (3)
  - Epistaxis [None]
  - International normalised ratio increased [None]
  - Accelerated hypertension [None]
